FAERS Safety Report 8018408-4 (Version None)
Quarter: 2012Q1

REPORT INFORMATION
  Report Type: 
  Country: None (occurrence: None)
  Receive Date: 20120103
  Receipt Date: 20111221
  Transmission Date: 20120608
  Serious: Yes (Life-Threatening, Hospitalization, Other)
  Sender: FDA-Public Use
  Company Number: JP-PFIZER INC-2011268270

PATIENT
  Age: 62 Year
  Sex: Male
  Weight: 79 kg

DRUGS (3)
  1. LIPITOR [Suspect]
     Indication: DYSLIPIDAEMIA
     Dosage: 5 MG, DAILY
     Route: 048
     Dates: start: 20111021, end: 20111024
  2. LIPITOR [Suspect]
     Indication: HYPERLIPIDAEMIA
  3. AMLODIPINE [Concomitant]
     Indication: HYPERTENSION
     Dosage: UNK
     Route: 048
     Dates: start: 20110112, end: 20111024

REACTIONS (3)
  - RHABDOMYOLYSIS [None]
  - PNEUMONIA ASPIRATION [None]
  - ALTERED STATE OF CONSCIOUSNESS [None]
